FAERS Safety Report 14569139 (Version 3)
Quarter: 2018Q1

REPORT INFORMATION
  Report Type: Spontaneous
  Country: US (occurrence: US)
  Receive Date: 20180223
  Receipt Date: 20180322
  Transmission Date: 20180509
  Serious: Yes (Other)
  Sender: FDA-Public Use
  Company Number: US-IMPAX LABORATORIES, INC-2018-IPXL-00558

PATIENT
  Age: 67 Year
  Sex: Female
  Weight: 49 kg

DRUGS (10)
  1. RYTARY [Suspect]
     Active Substance: CARBIDOPA\LEVODOPA
     Indication: PRODUCT USE IN UNAPPROVED INDICATION
     Dosage: 61.25/245 MG 4 CAPSULES DAILY
     Route: 048
  2. MIRAPEX [Concomitant]
     Active Substance: PRAMIPEXOLE DIHYDROCHLORIDE
     Indication: MULTIPLE SYSTEM ATROPHY
     Dosage: 1.75 MG, UNK
     Route: 048
  3. AMBIEN [Concomitant]
     Active Substance: ZOLPIDEM TARTRATE
     Indication: INSOMNIA
     Dosage: UNK
     Route: 048
  4. MIRAPEX [Concomitant]
     Active Substance: PRAMIPEXOLE DIHYDROCHLORIDE
     Indication: PARKINSON^S DISEASE
     Dosage: 3.75 MG, UNK
     Route: 048
  5. FLEXERIL [Concomitant]
     Active Substance: CYCLOBENZAPRINE HYDROCHLORIDE
     Indication: MUSCLE RELAXANT THERAPY
     Dosage: UNK
     Route: 048
  6. RYTARY [Suspect]
     Active Substance: CARBIDOPA\LEVODOPA
     Indication: PARKINSON^S DISEASE
     Dosage: 23.75 /95 MG 1 CAPSULES A DAY
     Route: 048
     Dates: start: 2016
  7. RYTARY [Suspect]
     Active Substance: CARBIDOPA\LEVODOPA
     Indication: MULTIPLE SYSTEM ATROPHY
     Dosage: 61.25/245 MG 1 CAPSULE DAILY
     Route: 048
  8. RYTARY [Suspect]
     Active Substance: CARBIDOPA\LEVODOPA
     Dosage: 61.25/245 MG 10 CAPSULES PER DAY
     Route: 048
     Dates: start: 2017
  9. EFFEXOR [Concomitant]
     Active Substance: VENLAFAXINE HYDROCHLORIDE
     Indication: DEPRESSION
     Dosage: UNK
     Route: 048
  10. ZOFRAN [Concomitant]
     Active Substance: ONDANSETRON HYDROCHLORIDE
     Indication: NAUSEA
     Dosage: UNK
     Route: 048

REACTIONS (4)
  - Dyspnoea [Recovered/Resolved]
  - Laceration [Unknown]
  - Drug ineffective for unapproved indication [Unknown]
  - Fall [Unknown]

NARRATIVE: CASE EVENT DATE: 201801
